FAERS Safety Report 10343613 (Version 2)
Quarter: 2014Q4

REPORT INFORMATION
  Report Type: Spontaneous
  Country: TR (occurrence: TR)
  Receive Date: 20140725
  Receipt Date: 20141106
  Transmission Date: 20150528
  Serious: No
  Sender: FDA-Public Use
  Company Number: TR-SA-2014SA096065

PATIENT
  Age: 20 Year
  Sex: Female
  Weight: 51 kg

DRUGS (4)
  1. ARAVA [Suspect]
     Active Substance: LEFLUNOMIDE
     Indication: ANKYLOSING SPONDYLITIS
     Route: 048
     Dates: start: 2006, end: 201405
  2. ARAVA [Suspect]
     Active Substance: LEFLUNOMIDE
     Indication: RHEUMATOID ARTHRITIS
     Route: 048
     Dates: start: 2006, end: 201405
  3. HUMIRA [Concomitant]
     Active Substance: ADALIMUMAB
     Indication: RHEUMATOID ARTHRITIS
     Dosage: ROUTE: PARENTRAL?FREQUENCY: 1 DF EVERY 15 DAYS
     Dates: start: 2006, end: 201405
  4. HUMIRA [Concomitant]
     Active Substance: ADALIMUMAB
     Indication: ANKYLOSING SPONDYLITIS
     Dosage: ROUTE: PARENTRAL?FREQUENCY: 1 DF EVERY 15 DAYS
     Dates: start: 2006, end: 201405

REACTIONS (4)
  - Exposure during pregnancy [Unknown]
  - Pruritus [Recovering/Resolving]
  - Scab [Recovering/Resolving]
  - Alopecia [Recovering/Resolving]

NARRATIVE: CASE EVENT DATE: 2006
